FAERS Safety Report 8402919 (Version 3)
Quarter: 2013Q4

REPORT INFORMATION
  Report Type: Spontaneous
  Country: US (occurrence: US)
  Receive Date: 20120213
  Receipt Date: 20131218
  Transmission Date: 20140711
  Serious: Yes (Other)
  Sender: FDA-Public Use
  Company Number: US-BAYER-2012-013726

PATIENT
  Age: 38 Year
  Sex: Female
  Weight: 79.37 kg

DRUGS (12)
  1. YASMIN [Suspect]
     Indication: PRODUCT USED FOR UNKNOWN INDICATION
     Dosage: UNK
     Dates: start: 200602, end: 200901
  2. OCELLA [Suspect]
     Dosage: UNK
     Dates: start: 200602, end: 200901
  3. PANTOPRAZOLE [Concomitant]
     Route: 048
  4. VALTREX [Concomitant]
     Dosage: UNK
     Route: 048
     Dates: start: 20080730
  5. SYNTHROID [Concomitant]
     Route: 048
  6. CARAFATE [Concomitant]
     Dosage: UNK
     Route: 048
     Dates: start: 20080923
  7. PROMETRIUM [Concomitant]
     Dosage: UNK
     Dates: start: 20081003
  8. CLARINEX [LORATADINE,PSEUDOEPHEDRINE SULFATE] [Concomitant]
     Dosage: UNK
     Route: 048
     Dates: start: 20081003
  9. ALPRAZOLAM [Concomitant]
     Dosage: UNK
     Route: 048
     Dates: start: 20081003
  10. GLUCOSAMINE [Concomitant]
     Dosage: UNK
     Route: 048
     Dates: start: 20081014
  11. MULTI-VITAMIN [Concomitant]
     Dosage: UNK
     Route: 048
     Dates: start: 20081014
  12. PREVACID [Concomitant]
     Dosage: UNK
     Route: 048
     Dates: start: 20091014

REACTIONS (9)
  - Gallbladder disorder [None]
  - Cholecystitis acute [None]
  - Gallbladder pain [None]
  - Anxiety [None]
  - Injury [None]
  - Gastrointestinal disorder [None]
  - Post cholecystectomy syndrome [None]
  - Pain [None]
  - Psychological trauma [None]
